FAERS Safety Report 7792567-0 (Version None)
Quarter: 2011Q4

REPORT INFORMATION
  Report Type: 
  Country: None (occurrence: None)
  Receive Date: 20111003
  Receipt Date: 20110928
  Transmission Date: 20120403
  Serious: Yes (Death)
  Sender: FDA-Public Use
  Company Number: US-CELGENEUS-163-21880-11093460

PATIENT
  Sex: Female

DRUGS (15)
  1. CALCIUM 600 + D [Concomitant]
     Dosage: 600 MILLIGRAM
     Route: 048
  2. METFORMIN HCL [Concomitant]
     Dosage: 500 MILLIGRAM
     Route: 048
  3. DEXAMETHASONE [Concomitant]
     Dosage: 4 MILLIGRAM
     Route: 048
  4. CITALOPRAM HYDROBROMIDE [Concomitant]
     Dosage: 10 MILLIGRAM
     Route: 048
  5. LISINOPRIL [Concomitant]
     Dosage: 20 MILLIGRAM
     Route: 048
  6. MIRALAX [Concomitant]
     Dosage: 3350
     Route: 048
  7. ZOFRAN [Concomitant]
     Dosage: 4 MILLIGRAM
     Route: 048
  8. ADULT ASPIRIN [Concomitant]
     Dosage: 81 MILLIGRAM
     Route: 048
  9. NOVOLOG [Concomitant]
     Route: 058
  10. LEVEMIR [Concomitant]
     Route: 058
  11. PRILOSEC [Concomitant]
     Dosage: 10 MILLIGRAM
     Route: 048
  12. SENNA [Concomitant]
     Dosage: 15 MILLIGRAM
     Route: 048
  13. REVLIMID [Suspect]
     Indication: MULTIPLE MYELOMA
     Dosage: 25 MILLIGRAM
     Route: 048
     Dates: start: 20100712, end: 20101201
  14. MS CONTIN [Concomitant]
     Dosage: 30 MILLIGRAM
     Route: 048
  15. SIMVASTATIN [Concomitant]
     Dosage: 10 MILLIGRAM
     Route: 048

REACTIONS (1)
  - DEATH [None]
